FAERS Safety Report 16111020 (Version 1)
Quarter: 2019Q2

REPORT INFORMATION
  Report Type: Spontaneous
  Country: US (occurrence: US)
  Receive Date: 20190322
  Receipt Date: 20190322
  Transmission Date: 20190711
  Serious: Yes (Hospitalization, Other)
  Sender: FDA-Public Use
  Company Number: None

PATIENT
  Age: 44 Year
  Sex: Female

DRUGS (2)
  1. JADENU [Suspect]
     Active Substance: DEFERASIROX
     Indication: HAEMOCHROMATOSIS
     Route: 048
     Dates: start: 20180116
  2. URSODIOL. [Concomitant]
     Active Substance: URSODIOL

REACTIONS (2)
  - Transfusion [None]
  - Biliary drainage [None]

NARRATIVE: CASE EVENT DATE: 20190311
